FAERS Safety Report 7483042-1 (Version None)
Quarter: 2011Q2

REPORT INFORMATION
  Report Type: 
  Country: None (occurrence: None)
  Receive Date: 20110516
  Receipt Date: 20110513
  Transmission Date: 20111010
  Serious: Yes (Hospitalization, Other)
  Sender: FDA-Public Use
  Company Number: DE-ABBOTT-11P-062-0708418-00

PATIENT
  Sex: Female
  Weight: 79 kg

DRUGS (2)
  1. HUMIRA [Suspect]
     Indication: PSORIASIS
     Route: 058
     Dates: start: 20100211
  2. HUMIRA [Suspect]
     Route: 058
     Dates: start: 20110216

REACTIONS (6)
  - ABDOMINAL PAIN [None]
  - VISUAL ACUITY REDUCED [None]
  - PERITONITIS [None]
  - SALPINGITIS [None]
  - SALPINGO-OOPHORITIS [None]
  - ABDOMINAL ABSCESS [None]
